FAERS Safety Report 17884805 (Version 1)
Quarter: 2020Q2

REPORT INFORMATION
  Report Type: Spontaneous
  Country: NL (occurrence: NL)
  Receive Date: 20200611
  Receipt Date: 20200611
  Transmission Date: 20200714
  Serious: Yes (Hospitalization)
  Sender: FDA-Public Use
  Company Number: NL-TEVA-2020-NL-1248352

PATIENT
  Sex: Female

DRUGS (2)
  1. ADCIRCA [Concomitant]
     Active Substance: TADALAFIL
     Dosage: 20 MILLIGRAM DAILY;
  2. BOSENTAN TEVA 125 MG, FILMOMHULDE TABLETTEN [Suspect]
     Active Substance: BOSENTAN
     Indication: SKIN ULCER
     Dosage: 250 MILLIGRAM DAILY;
     Route: 048
     Dates: start: 20200302

REACTIONS (3)
  - Blood disorder [Unknown]
  - Fluid retention [Unknown]
  - Dyspnoea [Unknown]
